FAERS Safety Report 16726921 (Version 2)
Quarter: 2019Q3

REPORT INFORMATION
  Report Type: Spontaneous
  Country: JP (occurrence: JP)
  Receive Date: 20190821
  Receipt Date: 20190821
  Transmission Date: 20191005
  Serious: Yes (Other)
  Sender: FDA-Public Use
  Company Number: PHHY2019JP174410

PATIENT
  Age: 56 Year
  Sex: Female

DRUGS (2)
  1. CICLOSPORIN [Suspect]
     Active Substance: CYCLOSPORINE
     Indication: DERMATOMYOSITIS
     Route: 065
  2. PREDNISOLONE. [Suspect]
     Active Substance: PREDNISOLONE
     Indication: DERMATOMYOSITIS
     Dosage: 60 MG, QD
     Route: 065

REACTIONS (3)
  - Disease recurrence [Unknown]
  - Product use in unapproved indication [Unknown]
  - Dermatomyositis [Unknown]
